FAERS Safety Report 4753699-4 (Version None)
Quarter: 2005Q3

REPORT INFORMATION
  Report Type: 
  Country: None (occurrence: None)
  Receive Date: 20050824
  Receipt Date: 20050811
  Transmission Date: 20060218
  Serious: Yes (Death, Hospitalization)
  Sender: FDA-Public Use
  Company Number: 2005AL003167

PATIENT
  Age: 36 Year
  Sex: Female

DRUGS (7)
  1. SERAX (OXAZEPAM) TABLETES, 15 MG (ALPHARMA) (SERAX (OXAZEPAM) TABLETS, [Suspect]
     Indication: DEPRESSION
     Dosage: PO
     Route: 048
     Dates: start: 20050530
  2. ATHYMIL ({NULL}) [Suspect]
     Dosage: 45 MG;QD
     Dates: start: 20050616, end: 20050629
  3. DEROXAT ({NULL}) [Suspect]
     Dosage: 20 MG;QD;PO
     Route: 048
  4. NUCTALON ({NULL}) [Suspect]
     Dosage: QD;PO
     Route: 048
     Dates: start: 20050523
  5. TERCIAN ({NULL}) [Suspect]
     Dosage: 25 MG;QD
     Dates: start: 20050614, end: 20050629
  6. TRANXENE ({NULL}) [Suspect]
     Dosage: QD
     Dates: end: 20050629
  7. DI-ANTALVIC [Concomitant]

REACTIONS (3)
  - CRYING [None]
  - PNEUMONIA ASPIRATION [None]
  - SUDDEN DEATH [None]
